FAERS Safety Report 16238138 (Version 5)
Quarter: 2021Q2

REPORT INFORMATION
  Report Type: Spontaneous
  Country: JP (occurrence: JP)
  Receive Date: 20190425
  Receipt Date: 20210402
  Transmission Date: 20210716
  Serious: Yes (Death, Hospitalization, Other)
  Sender: FDA-Public Use
  Company Number: JP-ELI_LILLY_AND_COMPANY-JP201904012161

PATIENT
  Age: 85 Year
  Sex: Female
  Weight: 61 kg

DRUGS (6)
  1. VERZENIO [Suspect]
     Active Substance: ABEMACICLIB
     Dosage: 250 MG, OTHER
     Dates: start: 20190323, end: 20190422
  2. VERZENIO [Suspect]
     Active Substance: ABEMACICLIB
     Indication: BREAST CANCER RECURRENT
     Dosage: 150 MG, BID
     Route: 048
     Dates: start: 20181208, end: 20190216
  3. VERZENIO [Suspect]
     Active Substance: ABEMACICLIB
     Dosage: UNK
  4. LANDSEN [Suspect]
     Active Substance: CLONAZEPAM
     Indication: PRODUCT USED FOR UNKNOWN INDICATION
     Dosage: UNK
     Route: 065
     Dates: start: 20190327, end: 20190422
  5. VERZENIO [Suspect]
     Active Substance: ABEMACICLIB
     Dosage: 100 MG, BID
     Route: 048
     Dates: start: 20190216, end: 20190323
  6. FASLODEX [Suspect]
     Active Substance: FULVESTRANT
     Indication: BREAST CANCER RECURRENT
     Dosage: 500 MG
     Route: 030
     Dates: start: 20181208, end: 201904

REACTIONS (5)
  - Malignant neoplasm progression [Fatal]
  - Aspartate aminotransferase increased [Unknown]
  - Interstitial lung disease [Recovering/Resolving]
  - Urticaria [Unknown]
  - Alanine aminotransferase increased [Unknown]

NARRATIVE: CASE EVENT DATE: 20190216
